FAERS Safety Report 23184350 (Version 2)
Quarter: 2024Q1

REPORT INFORMATION
  Report Type: Other
  Country: CO (occurrence: CO)
  Receive Date: 20231115
  Receipt Date: 20240215
  Transmission Date: 20240410
  Serious: No
  Sender: FDA-Public Use
  Company Number: CO-TOLMAR, INC.-23CO044309

PATIENT
  Sex: Male

DRUGS (10)
  1. ELIGARD [Suspect]
     Active Substance: LEUPROLIDE ACETATE
     Indication: Prostate cancer
     Dosage: 45 MILLIGRAM, Q 6 MONTH
     Route: 058
     Dates: start: 20230414
  2. ELIGARD [Suspect]
     Active Substance: LEUPROLIDE ACETATE
     Indication: Prostate cancer
     Dosage: UNK
  3. IRBESARTAN [Concomitant]
     Active Substance: IRBESARTAN
     Indication: Hypertension
  4. IRBESARTAN [Concomitant]
     Active Substance: IRBESARTAN
     Indication: Diabetes mellitus
  5. ATORVASTATIN [Concomitant]
     Active Substance: ATORVASTATIN
     Indication: Hypertension
  6. ATORVASTATIN [Concomitant]
     Active Substance: ATORVASTATIN
     Indication: Diabetes mellitus
  7. LEVOTHYROXINE [Concomitant]
     Active Substance: LEVOTHYROXINE\LEVOTHYROXINE SODIUM
     Indication: Hypertension
  8. LEVOTHYROXINE [Concomitant]
     Active Substance: LEVOTHYROXINE\LEVOTHYROXINE SODIUM
     Indication: Diabetes mellitus
  9. LINAGLIPTIN [Concomitant]
     Active Substance: LINAGLIPTIN
     Indication: Hypertension
  10. LINAGLIPTIN [Concomitant]
     Active Substance: LINAGLIPTIN
     Indication: Diabetes mellitus

REACTIONS (1)
  - Therapy cessation [Not Recovered/Not Resolved]
